FAERS Safety Report 16991180 (Version 1)
Quarter: 2019Q4

REPORT INFORMATION
  Report Type: Spontaneous
  Country: US (occurrence: US)
  Receive Date: 20191104
  Receipt Date: 20191104
  Transmission Date: 20200122
  Serious: No
  Sender: FDA-Public Use
  Company Number: US-AMAG PHARMACEUTICALS, INC.-AMAG201905499

PATIENT
  Age: 44 Year
  Sex: Female
  Weight: 84.9 kg

DRUGS (2)
  1. INTRAROSA [Suspect]
     Active Substance: PRASTERONE
     Indication: VULVOVAGINAL DRYNESS
  2. INTRAROSA [Suspect]
     Active Substance: PRASTERONE
     Indication: COITAL BLEEDING
     Route: 067

REACTIONS (1)
  - Off label use [Unknown]
